FAERS Safety Report 9643838 (Version 2)
Quarter: 2014Q1

REPORT INFORMATION
  Report Type: Spontaneous
  Country: GB (occurrence: None)
  Receive Date: 20131023
  Receipt Date: 20140214
  Transmission Date: 20141002
  Serious: Yes (Other)
  Sender: FDA-Public Use
  Company Number: 1955894

PATIENT
  Age: 71 Year
  Sex: Male

DRUGS (22)
  1. (MEROPENEM) [Suspect]
     Indication: ENDOCARDITIS BACTERIAL
     Dosage: 1 HOUR
     Route: 042
     Dates: start: 20130814, end: 20130901
  2. (VANCOMYCIN HYDROCHLORIDE) [Suspect]
     Indication: ENDOCARDITIS BACTERIAL
     Dosage: 1 HOUR
     Route: 042
     Dates: start: 20130810
  3. (PARACETAMOL) [Concomitant]
  4. (NICOTINAMIDE W/RIBOFLAVIN/THIAMINE) [Concomitant]
  5. (PIPERACILLIN AND TAZOBACTAM) [Concomitant]
  6. (ENOXAPARIN) [Concomitant]
  7. (NORMAL SALINE) [Concomitant]
  8. (SALBUTAMOL) [Concomitant]
  9. (GENTAMICIN) [Concomitant]
  10. (AMLODIPINE) [Concomitant]
  11. (METRONIDAZOLE) [Concomitant]
  12. (FERROUS FUMARATE) [Concomitant]
  13. (SODIUM BICARBONATE) [Concomitant]
  14. (BENZYDAMINE HYDROCHLORIDE) [Concomitant]
  15. (CASPOFUNGIN) [Concomitant]
  16. (DEXAMETHASONE) [Concomitant]
  17. (HYOSCINE) [Concomitant]
  18. GLYCOPYRROLATE /00196202/) [Concomitant]
  19. CHLORPHENAMINE MALEATE) [Concomitant]
  20. (CARBOCISTEINE) [Concomitant]
  21. (VORICONAZOLE) [Concomitant]
  22. (OTHER THERAPEUTIC PRODUCTS) [Concomitant]

REACTIONS (9)
  - Unresponsive to stimuli [None]
  - Tremor [None]
  - Emotional distress [None]
  - Rash erythematous [None]
  - Rash maculo-papular [None]
  - Skin lesion [None]
  - Petechiae [None]
  - Drug eruption [None]
  - Blister [None]
